APPROVED DRUG PRODUCT: MELPHALAN HYDROCHLORIDE
Active Ingredient: MELPHALAN HYDROCHLORIDE
Strength: EQ 50MG BASE/VIAL
Dosage Form/Route: INJECTABLE;INJECTION
Application: A090299 | Product #001
Applicant: MYLAN INSTITUTIONAL LLC
Approved: Oct 27, 2009 | RLD: No | RS: No | Type: DISCN